FAERS Safety Report 7074177-6 (Version None)
Quarter: 2010Q4

REPORT INFORMATION
  Report Type: 
  Country: None (occurrence: None)
  Receive Date: 20101020
  Receipt Date: 20101004
  Transmission Date: 20110411
  Serious: Yes (Other)
  Sender: FDA-Public Use
  Company Number: ACO_01044_2010

PATIENT
  Sex: Female
  Weight: 85.2762 kg

DRUGS (9)
  1. AMPYRA [Suspect]
     Indication: MULTIPLE SCLEROSIS
     Dosage: (10 MG BID ORAL) (10 MG QD ORAL) (10 MG ALTERNATING WITH 20 MG EVERY OTHER DAY ORAL)
     Route: 048
     Dates: start: 20100101, end: 20100101
  2. AMPYRA [Suspect]
     Indication: MULTIPLE SCLEROSIS
     Dosage: (10 MG BID ORAL) (10 MG QD ORAL) (10 MG ALTERNATING WITH 20 MG EVERY OTHER DAY ORAL)
     Route: 048
     Dates: start: 20100603, end: 20100101
  3. AMPYRA [Suspect]
     Indication: MULTIPLE SCLEROSIS
     Dosage: (10 MG BID ORAL) (10 MG QD ORAL) (10 MG ALTERNATING WITH 20 MG EVERY OTHER DAY ORAL)
     Route: 048
     Dates: start: 20100101
  4. NALTREXONE HYDROCHLORIDE [Concomitant]
  5. PROVIGIL [Concomitant]
  6. BENICAR [Concomitant]
  7. NORVASC [Concomitant]
  8. SYNTHROID [Concomitant]
  9. LEXAPRO [Concomitant]

REACTIONS (5)
  - CHILLS [None]
  - FEELING COLD [None]
  - NEPHROLITHIASIS [None]
  - THERAPEUTIC RESPONSE UNEXPECTED [None]
  - WEIGHT INCREASED [None]
